FAERS Safety Report 16415316 (Version 1)
Quarter: 2019Q2

REPORT INFORMATION
  Report Type: Other
  Country: ID (occurrence: ID)
  Receive Date: 20190611
  Receipt Date: 20190611
  Transmission Date: 20190711
  Serious: Yes (Death, Congenital Anomaly, Other)
  Sender: FDA-Public Use
  Company Number: ID-PROVELL PHARMACEUTICALS-2068068

PATIENT

DRUGS (2)
  1. METHIMAZOLE. [Suspect]
     Active Substance: METHIMAZOLE
  2. EUTHYROX [Suspect]
     Active Substance: LEVOTHYROXINE SODIUM
     Indication: HYPOTHYROIDISM

REACTIONS (6)
  - Gastroschisis [None]
  - Foetal exposure during pregnancy [Recovered/Resolved]
  - Foetal growth restriction [None]
  - Overdose [Recovered/Resolved]
  - Septic shock [Fatal]
  - Premature baby [Recovered/Resolved]

NARRATIVE: CASE EVENT DATE: 2013
